FAERS Safety Report 6984364-0 (Version None)
Quarter: 2010Q3

REPORT INFORMATION
  Report Type: 
  Country: None (occurrence: None)
  Receive Date: 20100915
  Receipt Date: 20100913
  Transmission Date: 20110219
  Serious: Yes (Death, Hospitalization, Other)
  Sender: FDA-Public Use
  Company Number: PHHY2010CA25907

PATIENT
  Sex: Female
  Weight: 45.4 kg

DRUGS (1)
  1. EXELON [Suspect]
     Indication: DEMENTIA ALZHEIMER'S TYPE
     Dosage: 4.6 MG, QD
     Route: 062
     Dates: start: 20091201, end: 20091215

REACTIONS (3)
  - DEATH [None]
  - FALL [None]
  - HIP FRACTURE [None]
